FAERS Safety Report 9301669 (Version 1)
Quarter: 2012Q4

REPORT INFORMATION
  Report Type: Spontaneous
  Country: US (occurrence: None)
  Receive Date: 20121109
  Receipt Date: 20121109
  Transmission Date: 20130627
  Serious: Yes (Death)
  Sender: FDA-Public Use
  Company Number: 2012S1000186

PATIENT
  Sex: Male

DRUGS (3)
  1. CUBICIN [Suspect]
     Indication: STAPHYLOCOCCAL INFECTION
  2. VANCOMYCIN [Concomitant]
  3. CEFTRIAXONE [Concomitant]

REACTIONS (3)
  - Acute respiratory failure [None]
  - Upper gastrointestinal haemorrhage [None]
  - Pleural effusion [None]
